FAERS Safety Report 21920687 (Version 2)
Quarter: 2023Q1

REPORT INFORMATION
  Report Type: Report from Study
  Country: MX (occurrence: MX)
  Receive Date: 20230127
  Receipt Date: 20230213
  Transmission Date: 20230417
  Serious: Yes (Death, Hospitalization, Other)
  Sender: FDA-Public Use
  Company Number: MX-002147023-NVSC2023MX018260

PATIENT
  Age: 84 Year
  Sex: Female

DRUGS (1)
  1. EXELON [Suspect]
     Active Substance: RIVASTIGMINE TARTRATE
     Indication: Memory impairment
     Dosage: 1 DOSAGE FORM, QD, (13.3 MG, QD PATCH 15 (CM2)
     Route: 062
     Dates: start: 20221101, end: 20230108

REACTIONS (2)
  - Pneumonia [Fatal]
  - Off label use [Recovered/Resolved]

NARRATIVE: CASE EVENT DATE: 20221101
